FAERS Safety Report 7716891-2 (Version None)
Quarter: 2011Q3

REPORT INFORMATION
  Report Type: 
  Country: None (occurrence: None)
  Receive Date: 20110829
  Receipt Date: 20110826
  Transmission Date: 20111222
  Serious: Yes (Other)
  Sender: FDA-Public Use
  Company Number: ES-PFIZER INC-2011198715

PATIENT
  Age: 39 Year
  Sex: Female

DRUGS (2)
  1. LYRICA [Suspect]
     Indication: BACK PAIN
     Dosage: UNKNOWN UNIT DOSE, 2X/DAY
     Route: 048
     Dates: start: 20110530, end: 20110607
  2. NOLOTIL /SPA/ [Suspect]
     Indication: BACK PAIN
     Dosage: UNK, 3X/DAY
     Route: 048
     Dates: start: 20110530, end: 20110607

REACTIONS (4)
  - SINUS TACHYCARDIA [None]
  - TREMOR [None]
  - HEADACHE [None]
  - BLOOD PRESSURE INCREASED [None]
